FAERS Safety Report 9787855 (Version 1)
Quarter: 2013Q4

REPORT INFORMATION
  Report Type: Spontaneous
  Country: US (occurrence: None)
  Receive Date: 20131227
  Receipt Date: 20131227
  Transmission Date: 20140711
  Serious: Yes (Other)
  Sender: FDA-Public Use
  Company Number: None

PATIENT
  Sex: 0

DRUGS (13)
  1. ESCITALOPRAM TEVA RITECOL MAY HAVE -301-267-2955 [Suspect]
     Indication: THERAPY CHANGE
     Dosage: NDC #?10MG-00093585101?20MG 0009358201?STRENGTH:10 MG 1 WEEK 20 MG?QUANTITY:1 MONTH?FREQUENCY:ONCE ADY?HOW WAS IT TAKEN OR USED: MOUTH?
     Route: 048
     Dates: start: 20130227, end: 20130330
  2. ESCITALOPRAM TEVA RITECOL MAY HAVE -301-267-2955 [Suspect]
     Indication: ANXIETY
     Dosage: NDC #?10MG-00093585101?20MG 0009358201?STRENGTH:10 MG 1 WEEK 20 MG?QUANTITY:1 MONTH?FREQUENCY:ONCE ADY?HOW WAS IT TAKEN OR USED: MOUTH?
     Route: 048
     Dates: start: 20130227, end: 20130330
  3. ESCITALOPRAM TEVA RITECOL MAY HAVE -301-267-2955 [Suspect]
     Indication: DEPRESSION
     Dosage: NDC #?10MG-00093585101?20MG 0009358201?STRENGTH:10 MG 1 WEEK 20 MG?QUANTITY:1 MONTH?FREQUENCY:ONCE ADY?HOW WAS IT TAKEN OR USED: MOUTH?
     Route: 048
     Dates: start: 20130227, end: 20130330
  4. LOREZEPAM [Concomitant]
  5. WELLBUTRIN [Concomitant]
  6. GEODON [Concomitant]
  7. FAMITODORE [Concomitant]
  8. PROTONIX [Concomitant]
  9. VIT. K [Concomitant]
  10. FISH OIL [Concomitant]
  11. MULTIVITAMINS [Concomitant]
  12. CALCIUM [Concomitant]
  13. ANTIOSIDENTS [Concomitant]

REACTIONS (3)
  - Dyspepsia [None]
  - Weight decreased [None]
  - Weight gain poor [None]
